FAERS Safety Report 23264882 (Version 2)
Quarter: 2024Q1

REPORT INFORMATION
  Report Type: Spontaneous
  Country: AU (occurrence: AU)
  Receive Date: 20231206
  Receipt Date: 20240104
  Transmission Date: 20240409
  Serious: Yes (Hospitalization)
  Sender: FDA-Public Use
  Company Number: AU-BEH-2023165834

PATIENT
  Age: 35 Year
  Sex: Male
  Weight: 105 kg

DRUGS (8)
  1. HUMAN IMMUNOGLOBULIN G [Suspect]
     Active Substance: HUMAN IMMUNOGLOBULIN G
     Indication: Polymyositis
     Dosage: 40 GRAM
     Route: 065
  2. HUMAN IMMUNOGLOBULIN G [Suspect]
     Active Substance: HUMAN IMMUNOGLOBULIN G
     Indication: Dermatomyositis
     Dosage: UNK
     Route: 065
  3. HUMAN IMMUNOGLOBULIN G [Suspect]
     Active Substance: HUMAN IMMUNOGLOBULIN G
     Indication: Immune-mediated myositis
     Dosage: 40 GRAM, QOW
     Route: 042
  4. HUMAN IMMUNOGLOBULIN G [Suspect]
     Active Substance: HUMAN IMMUNOGLOBULIN G
     Indication: Facioscapulohumeral muscular dystrophy
  5. HUMAN IMMUNOGLOBULIN G [Suspect]
     Active Substance: HUMAN IMMUNOGLOBULIN G
     Indication: Polymyositis
  6. ACETAMINOPHEN [Concomitant]
     Active Substance: ACETAMINOPHEN
     Indication: Premedication
     Dosage: 1000 MILLIGRAM, QD
     Route: 048
     Dates: start: 20231020
  7. LORATADINE [Concomitant]
     Active Substance: LORATADINE
     Indication: Premedication
     Dosage: 10 MILLIGRAM
     Route: 048
     Dates: start: 20231020
  8. HYDROCORTISONE [Concomitant]
     Active Substance: HYDROCORTISONE
     Indication: Premedication
     Dosage: 100 MILLIGRAM
     Route: 042
     Dates: start: 20231020

REACTIONS (15)
  - Drug intolerance [Unknown]
  - No adverse event [Unknown]
  - Off label use [Unknown]
  - Arthralgia [Recovered/Resolved]
  - Arthralgia [Recovered/Resolved]
  - Headache [Recovered/Resolved]
  - Head discomfort [Recovered/Resolved]
  - Neck pain [Recovered/Resolved]
  - Dyspnoea [Recovered/Resolved]
  - Chest pain [Recovered/Resolved]
  - Chest discomfort [Recovered/Resolved]
  - Sensation of foreign body [Unknown]
  - Blood pressure increased [Unknown]
  - Upper respiratory tract infection [Unknown]
  - Sinusitis [Unknown]

NARRATIVE: CASE EVENT DATE: 20230101
